FAERS Safety Report 8222289-3 (Version None)
Quarter: 2012Q1

REPORT INFORMATION
  Report Type: 
  Country: None (occurrence: None)
  Receive Date: 20120320
  Receipt Date: 20120313
  Transmission Date: 20120608
  Serious: Yes (Hospitalization, Other)
  Sender: FDA-Public Use
  Company Number: IE-GLAXOSMITHKLINE-B0778512A

PATIENT
  Age: 17 Year
  Sex: Female

DRUGS (2)
  1. LAMOTRIGINE [Suspect]
     Indication: PRODUCT USED FOR UNKNOWN INDICATION
     Route: 065
     Dates: end: 20120111
  2. VALPROATE SODIUM [Suspect]
     Indication: EPILEPSY
     Route: 048
     Dates: end: 20120111

REACTIONS (9)
  - FEELING ABNORMAL [None]
  - DRUG LEVEL INCREASED [None]
  - FATIGUE [None]
  - MALAISE [None]
  - CONVULSION [None]
  - LOSS OF CONSCIOUSNESS [None]
  - DRUG INEFFECTIVE [None]
  - VOMITING [None]
  - HEADACHE [None]
